FAERS Safety Report 5962036-9 (Version None)
Quarter: 2008Q4

REPORT INFORMATION
  Report Type: 
  Country: None (occurrence: None)
  Receive Date: 20081121
  Receipt Date: 20081112
  Transmission Date: 20090506
  Serious: Yes (Other)
  Sender: FDA-Public Use
  Company Number: US-WYE-H06822308

PATIENT
  Sex: Male
  Weight: 106.24 kg

DRUGS (5)
  1. PRISTIQ [Suspect]
     Indication: DEPRESSION
     Route: 048
     Dates: start: 20080401, end: 20081103
  2. HYDROCHLOROTHIAZIDE [Concomitant]
     Dosage: UNKNOWN
  3. BUSPAR [Concomitant]
     Dosage: UNKNOWN
  4. NORVASC [Concomitant]
     Indication: HYPERTENSION
     Dosage: UNKNOWN
  5. METOPROLOL [Concomitant]
     Indication: HYPERTENSION
     Dosage: UNKNOWN

REACTIONS (4)
  - CONVULSION [None]
  - DRUG WITHDRAWAL SYNDROME [None]
  - INFLUENZA [None]
  - TREMOR [None]
